FAERS Safety Report 8264776-8 (Version None)
Quarter: 2012Q2

REPORT INFORMATION
  Report Type: 
  Country: None (occurrence: None)
  Receive Date: 20120403
  Receipt Date: 20120323
  Transmission Date: 20120825
  Serious: Yes (Life-Threatening, Hospitalization)
  Sender: FDA-Public Use
  Company Number: MPS1-1000663

PATIENT
  Age: 35 Year
  Sex: Male

DRUGS (1)
  1. ALDURAZYME [Suspect]
     Indication: MUCOPOLYSACCHARIDOSIS I
     Dosage: 20.3 MG, QD, INTRAVENOUS
     Route: 042
     Dates: start: 20110906, end: 20120221

REACTIONS (3)
  - TRACHEAL STENOSIS [None]
  - MITRAL VALVE DISEASE [None]
  - RESPIRATORY FAILURE [None]
